FAERS Safety Report 10328132 (Version 2)
Quarter: 2014Q3

REPORT INFORMATION
  Report Type: Spontaneous
  Country: US (occurrence: US)
  Receive Date: 20140721
  Receipt Date: 20140721
  Transmission Date: 20150326
  Serious: Yes (Hospitalization, Other)
  Sender: FDA-Public Use
  Company Number: US-SA-2014SA090325

PATIENT
  Age: 63 Year
  Sex: Female

DRUGS (3)
  1. NEURONTIN [Concomitant]
     Active Substance: GABAPENTIN
     Indication: NEUROPATHY PERIPHERAL
  2. LANTUS SOLOSTAR [Suspect]
     Active Substance: INSULIN GLARGINE
     Indication: TYPE 2 DIABETES MELLITUS
     Dosage: DOSE:30 UNIT(S)
     Route: 058
     Dates: start: 20140610
  3. SOLOSTAR [Concomitant]
     Active Substance: DEVICE
     Dates: start: 20140610

REACTIONS (11)
  - Memory impairment [Unknown]
  - Pain in extremity [Unknown]
  - Visual impairment [Unknown]
  - Blood potassium increased [Unknown]
  - Blood sodium decreased [Unknown]
  - Gait disturbance [Unknown]
  - Injection site bruising [Unknown]
  - Blood glucose increased [Unknown]
  - Peripheral swelling [Unknown]
  - Diarrhoea [Unknown]
  - Injury associated with device [Unknown]
